FAERS Safety Report 12441720 (Version 3)
Quarter: 2018Q4

REPORT INFORMATION
  Report Type: Spontaneous
  Country: US (occurrence: US)
  Receive Date: 20160607
  Receipt Date: 20181113
  Transmission Date: 20190204
  Serious: Yes (Hospitalization, Other)
  Sender: FDA-Public Use
  Company Number: US-DSJP-DSU-2015-133793

PATIENT

DRUGS (3)
  1. BENICAR [Suspect]
     Active Substance: OLMESARTAN MEDOXOMIL
     Indication: HYPERTENSION
     Dosage: UNK
     Dates: start: 2006
  2. BENICAR [Suspect]
     Active Substance: OLMESARTAN MEDOXOMIL
     Dosage: 20 MG, QD
     Dates: start: 20141111
  3. BENICAR [Suspect]
     Active Substance: OLMESARTAN MEDOXOMIL
     Dosage: 40 MG, QD
     Route: 048
     Dates: start: 20050701

REACTIONS (11)
  - Intestinal ischaemia [Unknown]
  - Large intestine polyp [Recovered/Resolved]
  - Gastrooesophageal reflux disease [Not Recovered/Not Resolved]
  - Product administration error [Unknown]
  - Sprue-like enteropathy [Recovering/Resolving]
  - Irritable bowel syndrome [Unknown]
  - Erosive oesophagitis [Unknown]
  - Syncope [Unknown]
  - Acute kidney injury [Unknown]
  - Diverticulum intestinal [Not Recovered/Not Resolved]
  - Haemorrhoids [Not Recovered/Not Resolved]

NARRATIVE: CASE EVENT DATE: 2005
